FAERS Safety Report 9259684 (Version 3)
Quarter: 2013Q2

REPORT INFORMATION
  Report Type: Spontaneous
  Country: US (occurrence: US)
  Receive Date: 20130429
  Receipt Date: 20130603
  Transmission Date: 20140414
  Serious: Yes (Hospitalization, Other)
  Sender: FDA-Public Use
  Company Number: US-BIOGENIDEC-2013BI037859

PATIENT
  Age: 37 Year
  Sex: Female

DRUGS (3)
  1. TYSABRI [Suspect]
     Indication: MULTIPLE SCLEROSIS
     Route: 042
     Dates: start: 20120816
  2. VALIUM [Concomitant]
     Indication: TREMOR
  3. LORTAB [Concomitant]
     Indication: PAIN

REACTIONS (7)
  - Multiple sclerosis relapse [Unknown]
  - Mental disorder [Unknown]
  - Depression [Unknown]
  - Suicidal ideation [Not Recovered/Not Resolved]
  - Poor venous access [Recovered/Resolved]
  - Infusion site mass [Not Recovered/Not Resolved]
  - Frustration [Not Recovered/Not Resolved]
